FAERS Safety Report 9411449 (Version 2)
Quarter: 2013Q3

REPORT INFORMATION
  Report Type: Report from Study
  Country: US (occurrence: US)
  Receive Date: 20130722
  Receipt Date: 20130806
  Transmission Date: 20140515
  Serious: Yes (Death, Hospitalization)
  Sender: FDA-Public Use
  Company Number: US-PFIZER INC-2013207679

PATIENT
  Age: 43 Year
  Sex: Female
  Weight: 75 kg

DRUGS (2)
  1. CYTARABINE [Suspect]
     Indication: ACUTE MYELOMONOCYTIC LEUKAEMIA
     Dosage: 100 MG/M2/DAY (CONTINUOUS IV, DAYS 1-7)
     Route: 042
     Dates: start: 20051229, end: 20060105
  2. DAUNORUBICIN [Suspect]
     Indication: ACUTE MYELOMONOCYTIC LEUKAEMIA
     Dosage: 45 MG/M2, CYCLIC (DAYS 1,2 AND 3)
     Route: 042
     Dates: start: 20051229, end: 20051231

REACTIONS (1)
  - Haemorrhage intracranial [Fatal]
